FAERS Safety Report 4290332-2 (Version None)
Quarter: 2004Q1

REPORT INFORMATION
  Report Type: 
  Country: None (occurrence: None)
  Receive Date: 20040126
  Receipt Date: 20031111
  Transmission Date: 20041129
  Serious: No
  Sender: FDA-Public Use
  Company Number: USA030228260

PATIENT
  Age: 64 Year
  Sex: Female
  Weight: 59 kg

DRUGS (5)
  1. FORTEO [Suspect]
     Indication: OSTEOPOROSIS
     Dosage: 20 UG/DAY
     Dates: start: 20030101
  2. VITAMIN E [Concomitant]
  3. ELIDEL (PIMECROLIMUS) [Concomitant]
  4. PRINZIDE [Concomitant]
  5. POTASSIUM [Concomitant]

REACTIONS (5)
  - INJECTION SITE ERYTHEMA [None]
  - INJECTION SITE PAIN [None]
  - MUSCLE CRAMP [None]
  - RASH [None]
  - RASH ERYTHEMATOUS [None]
